FAERS Safety Report 19798768 (Version 2)
Quarter: 2021Q3

REPORT INFORMATION
  Report Type: Report from Study
  Country: None (occurrence: US)
  Receive Date: 20210907
  Receipt Date: 20210920
  Transmission Date: 20211014
  Serious: Yes (Hospitalization, Other)
  Sender: FDA-Public Use
  Company Number: US-ABBVIE-21K-163-4068568-00

PATIENT
  Age: 58 Year
  Sex: Male
  Weight: 71.73 kg

DRUGS (3)
  1. PFIZER?BIONTECH COVID?19 VACCINE [Concomitant]
     Active Substance: TOZINAMERAN
     Indication: COVID-19 IMMUNISATION
     Route: 030
     Dates: start: 20210305, end: 20210305
  2. HUMIRA [Suspect]
     Active Substance: ADALIMUMAB
     Indication: PSORIATIC ARTHROPATHY
     Dosage: CITRATE FREE
     Route: 058
  3. PFIZER?BIONTECH COVID?19 VACCINE [Concomitant]
     Active Substance: TOZINAMERAN
     Route: 030
     Dates: start: 20210324, end: 20210324

REACTIONS (12)
  - Feeling abnormal [Unknown]
  - Staphylococcal infection [Recovering/Resolving]
  - Weight decreased [Unknown]
  - Dehydration [Unknown]
  - Memory impairment [Unknown]
  - Seizure [Not Recovered/Not Resolved]
  - Inguinal hernia [Recovered/Resolved]
  - Pruritus [Unknown]
  - Vomiting [Unknown]
  - Tremor [Unknown]
  - Pain [Unknown]
  - Phantom limb syndrome [Unknown]

NARRATIVE: CASE EVENT DATE: 2021
